FAERS Safety Report 24856839 (Version 1)
Quarter: 2025Q1

REPORT INFORMATION
  Report Type: Spontaneous
  Country: US (occurrence: None)
  Receive Date: 20250116
  Receipt Date: 20250116
  Transmission Date: 20250409
  Serious: Yes (Other)
  Sender: FDA-CTU
  Company Number: None

PATIENT
  Sex: Female

DRUGS (3)
  1. LASTACAFT [Suspect]
     Active Substance: ALCAFTADINE
     Indication: Seasonal allergy
     Dosage: OTHER QUANTITY : 1 DROP(S);?FREQUENCY : DAILY;?
     Route: 047
     Dates: start: 20250102, end: 20250106
  2. LASTACAFT [Suspect]
     Active Substance: ALCAFTADINE
     Indication: Eye pruritus
  3. Zyflamend Whole Body Anti-Inflammatory [Concomitant]

REACTIONS (6)
  - Skin burning sensation [None]
  - Pain of skin [None]
  - Periorbital pain [None]
  - Erythema [None]
  - Pruritus [None]
  - Dry eye [None]

NARRATIVE: CASE EVENT DATE: 20250102
